FAERS Safety Report 12855237 (Version 2)
Quarter: 2016Q4

REPORT INFORMATION
  Report Type: Report from Study
  Country: JP (occurrence: JP)
  Receive Date: 20161017
  Receipt Date: 20161024
  Transmission Date: 20170207
  Serious: Yes (Hospitalization)
  Sender: FDA-Public Use
  Company Number: JP-B.I. PHARMACEUTICALS,INC./RIDGEFIELD-2015-BI-47481BI

PATIENT
  Age: 78 Year
  Sex: Male
  Weight: 61.8 kg

DRUGS (4)
  1. THEO-DUR [Concomitant]
     Active Substance: THEOPHYLLINE ANHYDROUS
     Indication: EMPHYSEMA
     Route: 048
     Dates: start: 20150811, end: 20150818
  2. FLUTIFORM [Concomitant]
     Active Substance: FLUTICASONE PROPIONATE\FORMOTEROL FUMARATE
     Indication: EMPHYSEMA
     Dosage: TOTAL DAILY DOSE: 4 INHALATIONS
     Route: 055
     Dates: start: 20150817
  3. BLINDED DABIGATRAN [Suspect]
     Active Substance: DABIGATRAN ETEXILATE
     Indication: CEREBROVASCULAR ACCIDENT
     Route: 048
     Dates: start: 20150801
  4. TULOBUTEROL [Concomitant]
     Active Substance: TULOBUTEROL
     Indication: EMPHYSEMA
     Dosage: FORMULATION: TAPE
     Route: 062
     Dates: start: 20150813, end: 20150818

REACTIONS (4)
  - Emphysema [Recovered/Resolved]
  - Asthma [Recovered/Resolved]
  - Bronchitis bacterial [Recovered/Resolved]
  - Urticaria [Recovered/Resolved]

NARRATIVE: CASE EVENT DATE: 20150813
